FAERS Safety Report 7323595-7 (Version None)
Quarter: 2011Q1

REPORT INFORMATION
  Report Type: 
  Country: None (occurrence: None)
  Receive Date: 20110301
  Receipt Date: 20110223
  Transmission Date: 20110831
  Serious: Yes (Other)
  Sender: FDA-Public Use
  Company Number: KR-PFIZER INC-2011021344

PATIENT
  Sex: Male

DRUGS (2)
  1. VIAGRA [Suspect]
     Dosage: 100 MG, UNK
     Route: 048
     Dates: start: 20110129
  2. VIAGRA [Suspect]
     Indication: ERECTILE DYSFUNCTION
     Dosage: HALF OF 100 MG
     Route: 048
     Dates: start: 20091001

REACTIONS (4)
  - MEDICATION ERROR [None]
  - STUPOR [None]
  - DREAMY STATE [None]
  - DRUG EFFECT DECREASED [None]
